FAERS Safety Report 13746345 (Version 1)
Quarter: 2017Q3

REPORT INFORMATION
  Report Type: Spontaneous
  Country: FR (occurrence: FR)
  Receive Date: 20170712
  Receipt Date: 20170712
  Transmission Date: 20171127
  Serious: Yes (Hospitalization)
  Sender: FDA-Public Use
  Company Number: FR-GILEAD-2017-0282561

PATIENT
  Age: 70 Year
  Sex: Female

DRUGS (9)
  1. KARDEGIC [Concomitant]
     Active Substance: ASPIRIN LYSINE
     Dosage: 75 MG, QD 1 BAG IN EVENING
  2. FOLIC ACID. [Concomitant]
     Active Substance: FOLIC ACID
     Indication: CHRONIC LYMPHOCYTIC LEUKAEMIA
     Dosage: UNK
     Dates: start: 20170505, end: 20170515
  3. ZYDELIG [Suspect]
     Active Substance: IDELALISIB
     Indication: CHRONIC LYMPHOCYTIC LEUKAEMIA
     Dosage: 150 MG, BID
     Route: 048
     Dates: start: 20170505, end: 20170515
  4. BACTRIM [Concomitant]
     Active Substance: SULFAMETHOXAZOLE\TRIMETHOPRIM
     Indication: CHRONIC LYMPHOCYTIC LEUKAEMIA
     Dosage: UNK
     Dates: start: 20170505, end: 20170515
  5. ZELITREX [Concomitant]
     Active Substance: VALACYCLOVIR HYDROCHLORIDE
     Dosage: UNK
     Dates: start: 2016, end: 20170515
  6. LEVOTHYROX [Concomitant]
     Active Substance: LEVOTHYROXINE
     Dosage: 1 DF, QD 125
  7. BISOPROLOL [Concomitant]
     Active Substance: BISOPROLOL
     Dosage: 2.5 MG, UNK
     Dates: end: 20170515
  8. ZYDELIG [Suspect]
     Active Substance: IDELALISIB
     Dosage: 100 MG, QD
     Route: 048
     Dates: start: 20170619, end: 20170619
  9. FLECAINE LP [Concomitant]
     Active Substance: FLECAINIDE
     Dosage: 200 MG, QD EVENING

REACTIONS (3)
  - Rash maculo-papular [Recovered/Resolved]
  - Eosinophil count increased [Recovering/Resolving]
  - Pyrexia [Recovered/Resolved]

NARRATIVE: CASE EVENT DATE: 20170619
